FAERS Safety Report 8870843 (Version 1)
Quarter: 2012Q4

REPORT INFORMATION
  Report Type: 
  Country: BR (occurrence: BR)
  Receive Date: 20121029
  Receipt Date: 20121029
  Transmission Date: 20130627
  Serious: Yes (Other)
  Sender: FDA-Public Use
  Company Number: PHHY2012BR096531

PATIENT
  Sex: Female
  Weight: 61 kg

DRUGS (3)
  1. DIOVAN AMLO FIX [Suspect]
     Indication: HYPERTENSION
     Dosage: 1 DF, 1 tablet (valsartan 160mg and amlodipine 5mg) a day
     Route: 048
  2. DIOVAN AMLO FIX [Suspect]
     Dosage: 1 DF, 1 tablet (valsartan 320mg and amlodipine 5mg) a day
     Route: 048
  3. SIMVASTATIN [Concomitant]
     Dosage: 1 DF, 1 tablet a day
     Route: 048

REACTIONS (2)
  - Amnesia [Recovering/Resolving]
  - Hypertension [Recovered/Resolved]
